FAERS Safety Report 4828211-1 (Version None)
Quarter: 2005Q4

REPORT INFORMATION
  Report Type: 
  Country: None (occurrence: None)
  Receive Date: 20051115
  Receipt Date: 20051104
  Transmission Date: 20060501
  Serious: Yes (Other)
  Sender: FDA-Public Use
  Company Number: PHRM2005FR02933

PATIENT
  Age: 52 Year
  Sex: Female

DRUGS (2)
  1. LESCOL [Suspect]
     Indication: DYSLIPIDAEMIA
     Dosage: 80 MG, QD
     Route: 048
     Dates: end: 20051104
  2. AUGMENTIN [Concomitant]
     Dates: start: 20051031

REACTIONS (2)
  - OEDEMA PERIPHERAL [None]
  - PRURITUS [None]
